FAERS Safety Report 4681787-X (Version None)
Quarter: 2005Q2

REPORT INFORMATION
  Report Type: 
  Country: None (occurrence: None)
  Receive Date: 20050601
  Receipt Date: 20050517
  Transmission Date: 20051028
  Serious: Yes (Hospitalization)
  Sender: FDA-Public Use
  Company Number: USA050393745

PATIENT
  Age: 50 Year
  Sex: Female
  Weight: 52 kg

DRUGS (17)
  1. FORTEO [Suspect]
     Indication: OSTEOPOROSIS
     Dosage: 20 UG/1 DAY
     Dates: start: 20041223, end: 20050226
  2. STRATTERA [Concomitant]
  3. VIVELLE (ESTRADIOL/00045401) [Concomitant]
  4. FLUTICASONE W/SALMETEROL [Concomitant]
  5. SALAGEN [Concomitant]
  6. NEXIUM [Concomitant]
  7. CLARITIN [Concomitant]
  8. ATACAND [Concomitant]
  9. NEURONTIN [Concomitant]
  10. DILTIAZEM [Concomitant]
  11. EFFEXOR [Concomitant]
  12. LEVOXYL [Concomitant]
  13. MOBIC [Concomitant]
  14. IMIPRAMINE [Concomitant]
  15. CITRACAL (CALCIUM CITRATE) [Concomitant]
  16. B12 (CYANOCOBALAMIN-TANIN COMPLEX) [Concomitant]
  17. SINGULAIR (MONTELUKAST) [Concomitant]

REACTIONS (12)
  - ABDOMINAL PAIN UPPER [None]
  - ACUTE MYOCARDIAL INFARCTION [None]
  - ANGINA PECTORIS [None]
  - ASTHENIA [None]
  - BLOOD PRESSURE SYSTOLIC DECREASED [None]
  - FATIGUE [None]
  - MIGRAINE [None]
  - NAUSEA [None]
  - PALLOR [None]
  - SYNCOPE [None]
  - THERAPY NON-RESPONDER [None]
  - VOMITING [None]
